FAERS Safety Report 7729947-5 (Version None)
Quarter: 2011Q3

REPORT INFORMATION
  Report Type: 
  Country: None (occurrence: None)
  Receive Date: 20110906
  Receipt Date: 20110829
  Transmission Date: 20111222
  Serious: Yes (Hospitalization, Other)
  Sender: FDA-Public Use
  Company Number: FR-PFIZER INC-2011205644

PATIENT
  Age: 81 Year
  Sex: Male

DRUGS (8)
  1. SIMVASTATIN [Suspect]
     Indication: DYSLIPIDAEMIA
     Dosage: 40 MG, UNK
     Route: 048
     Dates: start: 20110501
  2. PERINDOPRIL ERBUMINE [Suspect]
     Indication: MYOCARDIAL ISCHAEMIA
     Dosage: 2.5 MG, UNK
     Route: 048
     Dates: start: 20110501, end: 20110729
  3. BISOPROLOL FUMARATE [Suspect]
     Indication: MYOCARDIAL ISCHAEMIA
     Dosage: 10 MG, UNK
     Route: 048
     Dates: start: 20110501, end: 20110723
  4. CLOPIDOGREL SULFATE [Suspect]
     Indication: MYOCARDIAL ISCHAEMIA
     Dosage: 75 MG, UNK
     Route: 048
     Dates: start: 20110501, end: 20110723
  5. LEXOMIL [Suspect]
     Dosage: UNK
     Route: 048
     Dates: start: 20110720, end: 20110723
  6. AMLODIPINE BESYLATE [Suspect]
     Indication: MYOCARDIAL ISCHAEMIA
     Dosage: 5 MG, UNK
     Route: 048
     Dates: start: 20110501, end: 20110723
  7. PANTOPRAZOLE [Suspect]
     Dosage: 40 MG, UNK
     Route: 048
     Dates: start: 20110720, end: 20110723
  8. ASPIRIN [Suspect]
     Indication: MYOCARDIAL ISCHAEMIA
     Dosage: 75 MG, UNK
     Route: 048
     Dates: start: 20110501, end: 20110723

REACTIONS (2)
  - MOUTH HAEMORRHAGE [None]
  - THROMBOCYTOPENIC PURPURA [None]
